FAERS Safety Report 16791170 (Version 2)
Quarter: 2019Q4

REPORT INFORMATION
  Report Type: Spontaneous
  Country: US (occurrence: US)
  Receive Date: 20190910
  Receipt Date: 20191014
  Transmission Date: 20200122
  Serious: Yes (Hospitalization, Other)
  Sender: FDA-Public Use
  Company Number: US-PFIZER INC-2019385733

PATIENT
  Age: 58 Year
  Sex: Male

DRUGS (8)
  1. TIKOSYN [Suspect]
     Active Substance: DOFETILIDE
     Indication: ATRIAL FIBRILLATION
     Dosage: 500 UG, UNK
  2. COZAAR [Concomitant]
     Active Substance: LOSARTAN POTASSIUM
     Dosage: 12.5 MG, DAILY (TAKE 0.5 TABLETS (12.5 MG TOTAL) BY MOUTH DAILY-ORAL)
     Route: 048
     Dates: start: 20190522
  3. TIKOSYN [Suspect]
     Active Substance: DOFETILIDE
     Indication: SINUS RHYTHM
     Dosage: UNK
     Route: 042
     Dates: start: 20190909, end: 20190910
  4. LANOXIN [Concomitant]
     Active Substance: DIGOXIN
     Dosage: 125 UG, DAILY
     Route: 048
     Dates: start: 20190522
  5. LASIX [Concomitant]
     Active Substance: FUROSEMIDE
     Dosage: 20 MG, DAILY
     Route: 048
     Dates: start: 20190830
  6. COQ10 [Concomitant]
     Active Substance: UBIDECARENONE
     Dosage: UNK UNK, DAILY (TAKE 1 CAPSULE BY MOUTH DAILY)
     Route: 048
  7. ELIQUIS [Concomitant]
     Active Substance: APIXABAN
     Dosage: 5 MG, 2X/DAY
     Route: 048
     Dates: start: 20190422
  8. TOPROL XL [Concomitant]
     Active Substance: METOPROLOL SUCCINATE
     Dosage: 50 MG, DAILY (TAKE 1 TABLET (50 MG TOTAL) BY MOUTH DAILY - ORAL)
     Route: 048
     Dates: start: 20190603

REACTIONS (6)
  - Bradycardia [Unknown]
  - Cardiac failure congestive [Unknown]
  - Ventricular tachycardia [Recovered/Resolved]
  - Drug ineffective [Unknown]
  - Exercise tolerance decreased [Unknown]
  - Sleep apnoea syndrome [Unknown]

NARRATIVE: CASE EVENT DATE: 20190910
